FAERS Safety Report 4388111-0 (Version None)
Quarter: 2004Q2

REPORT INFORMATION
  Report Type: 
  Country: None (occurrence: None)
  Receive Date: 20040630
  Receipt Date: 20040630
  Transmission Date: 20050107
  Serious: Yes (Hospitalization)
  Sender: FDA-Public Use
  Company Number: None

PATIENT
  Sex: Male
  Weight: 69.4003 kg

DRUGS (6)
  1. DIGOXIN [Suspect]
     Dosage: 0.125MG DAILY ORAL
     Route: 048
     Dates: start: 20030804, end: 20040610
  2. GALANTAMINE [Concomitant]
  3. SPIRONOLACTONE [Concomitant]
  4. ENALAPRIL MALEATE [Concomitant]
  5. TERAZOSIN HCL [Concomitant]
  6. SIMVASTATIN [Concomitant]

REACTIONS (2)
  - CARDIOACTIVE DRUG LEVEL INCREASED [None]
  - SYNCOPE [None]
